FAERS Safety Report 8154686-9 (Version None)
Quarter: 2012Q1

REPORT INFORMATION
  Report Type: 
  Country: None (occurrence: None)
  Receive Date: 20120221
  Receipt Date: 20120217
  Transmission Date: 20120608
  Serious: Yes (Death)
  Sender: FDA-Public Use
  Company Number: CHPA2012US002196

PATIENT
  Age: 68 Year
  Sex: Male

DRUGS (2)
  1. LORATADINE [Concomitant]
     Indication: SEASONAL ALLERGY
  2. EXCEDRIN (MIGRAINE) [Suspect]
     Dosage: UNK, UNK
     Route: 048
     Dates: end: 20120103

REACTIONS (2)
  - ARRHYTHMIA [None]
  - INSOMNIA [None]
